FAERS Safety Report 4583868-8 (Version None)
Quarter: 2005Q1

REPORT INFORMATION
  Report Type: 
  Country: None (occurrence: None)
  Receive Date: 20050216
  Receipt Date: 20050215
  Transmission Date: 20050727
  Serious: Yes (Other)
  Sender: FDA-Public Use
  Company Number: PHNU2005DE00955

PATIENT
  Age: 80 Year
  Sex: Female

DRUGS (3)
  1. RISPERDAL [Suspect]
     Dosage: 1 MG, QD (PULVERIZED)
     Route: 048
     Dates: start: 20050214, end: 20050214
  2. LIORESAL [Suspect]
     Indication: MUSCLE SPASTICITY
     Dosage: 10 MG, QD (PULVERIZED)
     Route: 048
     Dates: start: 20050214, end: 20050214
  3. DURAGESIC [Concomitant]

REACTIONS (1)
  - DEPRESSED LEVEL OF CONSCIOUSNESS [None]
